FAERS Safety Report 11589894 (Version 1)
Quarter: 2015Q4

REPORT INFORMATION
  Report Type: Report from Study
  Country: CO (occurrence: CO)
  Receive Date: 20151002
  Receipt Date: 20151002
  Transmission Date: 20160304
  Serious: Yes (Hospitalization, Other)
  Sender: FDA-Public Use
  Company Number: CO-REGENERON PHARMACEUTICALS, INC.-2015-12633

PATIENT

DRUGS (1)
  1. EYLEA [Suspect]
     Active Substance: AFLIBERCEPT
     Indication: NEOVASCULAR AGE-RELATED MACULAR DEGENERATION
     Dosage: 1 DF, UNK
     Route: 031
     Dates: start: 20130624, end: 2014

REACTIONS (4)
  - Intestinal obstruction [Unknown]
  - Coma [Recovered/Resolved]
  - Intestinal operation [Unknown]
  - Seizure [Unknown]

NARRATIVE: CASE EVENT DATE: 20150628
